FAERS Safety Report 6021056-9 (Version None)
Quarter: 2008Q4

REPORT INFORMATION
  Report Type: 
  Country: None (occurrence: None)
  Receive Date: 20081229
  Receipt Date: 20081218
  Transmission Date: 20090506
  Serious: Yes (Hospitalization, Other)
  Sender: FDA-Public Use
  Company Number: US-BAXTER-2008BH012862

PATIENT
  Age: 42 Year
  Sex: Male
  Weight: 108 kg

DRUGS (19)
  1. CYCLOPHOSPHAMIDE [Suspect]
     Indication: DIFFUSE LARGE B-CELL LYMPHOMA
     Route: 042
     Dates: start: 20081113, end: 20081113
  2. CYCLOPHOSPHAMIDE [Suspect]
     Route: 042
     Dates: start: 20081016, end: 20081016
  3. CYCLOPHOSPHAMIDE [Suspect]
     Route: 042
     Dates: start: 20080724, end: 20080724
  4. ENZASTAURIN [Suspect]
     Indication: DIFFUSE LARGE B-CELL LYMPHOMA
     Route: 048
     Dates: start: 20081113, end: 20081113
  5. ENZASTAURIN [Suspect]
     Route: 048
     Dates: start: 20081016, end: 20081016
  6. ENZASTAURIN [Suspect]
     Route: 048
     Dates: start: 20080724, end: 20080724
  7. RITUXIMAB [Suspect]
     Indication: DIFFUSE LARGE B-CELL LYMPHOMA
     Route: 042
     Dates: start: 20081016, end: 20081016
  8. RITUXIMAB [Suspect]
     Route: 042
     Dates: start: 20081113, end: 20081113
  9. RITUXIMAB [Suspect]
     Route: 042
     Dates: start: 20080724, end: 20080724
  10. DOXORUBICIN HCL [Suspect]
     Indication: DIFFUSE LARGE B-CELL LYMPHOMA
     Route: 042
     Dates: start: 20081113, end: 20081113
  11. DOXORUBICIN HCL [Suspect]
     Route: 042
     Dates: start: 20081016, end: 20081016
  12. DOXORUBICIN HCL [Suspect]
     Route: 042
     Dates: start: 20080724, end: 20080724
  13. VINCRISTINE SULFATE [Suspect]
     Indication: DIFFUSE LARGE B-CELL LYMPHOMA
     Route: 042
     Dates: start: 20081113, end: 20081113
  14. VINCRISTINE SULFATE [Suspect]
     Route: 042
     Dates: start: 20081016, end: 20081016
  15. VINCRISTINE SULFATE [Suspect]
     Route: 042
     Dates: start: 20080724, end: 20080724
  16. PREDNISONE [Suspect]
     Indication: DIFFUSE LARGE B-CELL LYMPHOMA
     Route: 048
     Dates: start: 20081020
  17. ALLOPURINOL [Concomitant]
     Indication: DRUG USE FOR UNKNOWN INDICATION
     Route: 065
  18. POTASSIUM CHLORIDE [Concomitant]
     Indication: DRUG USE FOR UNKNOWN INDICATION
     Route: 065
  19. TYLENOL COLD SEVERE CONGESTION [Concomitant]
     Indication: DRUG USE FOR UNKNOWN INDICATION
     Route: 065

REACTIONS (3)
  - ABDOMINAL PAIN [None]
  - DIARRHOEA [None]
  - WEIGHT DECREASED [None]
